FAERS Safety Report 8956022 (Version 2)
Quarter: 2013Q1

REPORT INFORMATION
  Report Type: Spontaneous
  Country: NL (occurrence: NL)
  Receive Date: 20121210
  Receipt Date: 20130118
  Transmission Date: 20140127
  Serious: No
  Sender: FDA-Public Use
  Company Number: NL-NOVOPROD-365673

PATIENT
  Age: 56 Year
  Sex: Male
  Weight: 77 kg

DRUGS (4)
  1. VICTOZA [Suspect]
     Indication: DIABETES MELLITUS
     Dosage: STARTDOSE 1.8MG
     Route: 058
     Dates: start: 20121124, end: 20121125
  2. PRAMIPEXOLE [Concomitant]
     Dosage: 0.25 MG, QD
     Route: 048
     Dates: start: 20121129
  3. METHYLPHENIDATE [Concomitant]
     Dosage: 15 MG, BID
     Route: 048
     Dates: start: 20121129
  4. METOPROLOL [Concomitant]
     Dosage: 25 MG, BID
     Route: 048
     Dates: start: 20121129

REACTIONS (4)
  - Drug prescribing error [Unknown]
  - Nausea [Recovered/Resolved]
  - Vomiting [Recovered/Resolved]
  - Diarrhoea [Recovered/Resolved]
